FAERS Safety Report 25557837 (Version 1)
Quarter: 2025Q3

REPORT INFORMATION
  Report Type: Spontaneous
  Country: CN (occurrence: CN)
  Receive Date: 20250715
  Receipt Date: 20250715
  Transmission Date: 20251020
  Serious: Yes (Hospitalization, Other)
  Sender: PFIZER
  Company Number: CN-PFIZER INC-PV202500083723

PATIENT
  Age: 38 Year
  Sex: Female
  Weight: 45 kg

DRUGS (2)
  1. EPIRUBICIN HYDROCHLORIDE [Suspect]
     Active Substance: EPIRUBICIN HYDROCHLORIDE
     Indication: Breast cancer female
     Dosage: 110 MG, 1X/DAY (ONCE)
     Route: 041
     Dates: start: 20250701, end: 20250701
  2. CYCLOPHOSPHAMIDE [Suspect]
     Active Substance: CYCLOPHOSPHAMIDE
     Indication: Breast cancer female
     Dosage: 0.8 G, 1X/DAY (ONCE)
     Route: 042
     Dates: start: 20250701, end: 20250701

REACTIONS (5)
  - Nausea [Recovering/Resolving]
  - Vomiting [Recovering/Resolving]
  - Decreased appetite [Unknown]
  - Oropharyngeal pain [Unknown]
  - Eating disorder [Unknown]

NARRATIVE: CASE EVENT DATE: 20250701
